FAERS Safety Report 13465727 (Version 1)
Quarter: 2017Q2

REPORT INFORMATION
  Report Type: Report from Study
  Country: None (occurrence: US)
  Receive Date: 20170421
  Receipt Date: 20170421
  Transmission Date: 20170830
  Serious: Yes (Other)
  Sender: FDA-Public Use
  Company Number: US-ABBVIE-16K-163-1806790-00

PATIENT
  Age: 59 Year
  Sex: Female

DRUGS (1)
  1. HUMIRA [Suspect]
     Active Substance: ADALIMUMAB
     Indication: PSORIASIS
     Route: 058
     Dates: start: 20100606, end: 2016

REACTIONS (7)
  - Chest injury [Recovering/Resolving]
  - Blood calcium increased [Not Recovered/Not Resolved]
  - Umbilical hernia [Unknown]
  - Psoriasis [Unknown]
  - Appendicitis perforated [Recovering/Resolving]
  - Fall [Unknown]
  - Procedural pain [Not Recovered/Not Resolved]

NARRATIVE: CASE EVENT DATE: 2016
